FAERS Safety Report 23744386 (Version 2)
Quarter: 2024Q2

REPORT INFORMATION
  Report Type: Spontaneous
  Country: BE (occurrence: BE)
  Receive Date: 20240415
  Receipt Date: 20240418
  Transmission Date: 20240716
  Serious: Yes (Other)
  Sender: FDA-Public Use
  Company Number: BE-SA-2024SA094723

PATIENT
  Age: 75 Year
  Sex: Male

DRUGS (5)
  1. PANTOPRAZOLE [Suspect]
     Active Substance: PANTOPRAZOLE
     Dosage: 20 MG, 1X/DAY (20 MILLIGRAM, QD)
     Route: 065
     Dates: start: 2022
  2. CHOLECALCIFEROL [Concomitant]
     Active Substance: CHOLECALCIFEROL
     Dosage: 25000 DF, WEEKLY (25000 U DOSAGE FORM, 1/WEEK)
     Dates: start: 2022
  3. VITAMIN C [Concomitant]
     Active Substance: ASCORBIC ACID
     Indication: Supplementation therapy
     Dosage: UNK
     Dates: start: 2022
  4. INDAPAMIDE\PERINDOPRIL [Concomitant]
     Active Substance: INDAPAMIDE\PERINDOPRIL
     Indication: Hypertension
     Dosage: 1 DF, 1X/DAY (1 DOSAGE FORM, QD)
     Dates: start: 2022
  5. PANCREATIN [Concomitant]
     Active Substance: PANCRELIPASE
     Dosage: 420 MG, 3X/DAY (420 MILLIGRAM, Q8HR)
     Dates: start: 2022

REACTIONS (2)
  - Renal tubular necrosis [Unknown]
  - Tubulointerstitial nephritis [Unknown]

NARRATIVE: CASE EVENT DATE: 20220101
